FAERS Safety Report 6747874-7 (Version None)
Quarter: 2010Q2

REPORT INFORMATION
  Report Type: 
  Country: None (occurrence: None)
  Receive Date: 20100528
  Receipt Date: 20100521
  Transmission Date: 20101027
  Serious: Yes (Other)
  Sender: FDA-Public Use
  Company Number: US-GENENTECH-302196

PATIENT
  Age: 52 Year
  Sex: Female
  Weight: 68.027 kg

DRUGS (9)
  1. XOLAIR [Suspect]
     Indication: ASTHMA
     Dosage: 225 UNK, Q2W
     Route: 058
     Dates: start: 20090424, end: 20090513
  2. BENADRYL [Concomitant]
     Indication: DRUG USE FOR UNKNOWN INDICATION
  3. ALLEGRA [Concomitant]
     Indication: DRUG USE FOR UNKNOWN INDICATION
  4. PROAIR HFA [Concomitant]
     Indication: DRUG USE FOR UNKNOWN INDICATION
  5. SYMBICORT [Concomitant]
     Indication: DRUG USE FOR UNKNOWN INDICATION
  6. NEXIUM [Concomitant]
     Indication: DRUG USE FOR UNKNOWN INDICATION
  7. BLOOD PRESSURE MEDICATION NOS [Concomitant]
     Indication: DRUG USE FOR UNKNOWN INDICATION
  8. LEVAQUIN [Concomitant]
     Indication: DRUG USE FOR UNKNOWN INDICATION
  9. ATARAX [Concomitant]
     Indication: DRUG USE FOR UNKNOWN INDICATION

REACTIONS (1)
  - HYPERTENSION [None]
